FAERS Safety Report 7371734-4 (Version None)
Quarter: 2011Q1

REPORT INFORMATION
  Report Type: 
  Country: None (occurrence: None)
  Receive Date: 20110316
  Receipt Date: 20110302
  Transmission Date: 20110831
  Serious: Yes (Other)
  Sender: FDA-Public Use
  Company Number: 2011-0653

PATIENT
  Age: 37 Year
  Sex: Male

DRUGS (3)
  1. LANREOTIDE AUTOGEL (LANREOTIDE) (LANREOTIDE ACETATE) [Suspect]
     Indication: NEUROENDOCRINE CARCINOMA
     Dosage: (90 MG) (120 MG)
  2. ZOLEDRONIC ACID [Concomitant]
  3. SIROLIMUS (RAPAMUNE) [Concomitant]

REACTIONS (3)
  - PANCREATIC NEUROENDOCRINE TUMOUR METASTATIC [None]
  - ADRENAL INSUFFICIENCY [None]
  - NEOPLASM MALIGNANT [None]
